FAERS Safety Report 5454754-6 (Version None)
Quarter: 2007Q3

REPORT INFORMATION
  Report Type: 
  Country: None (occurrence: None)
  Receive Date: 20070917
  Receipt Date: 20060811
  Transmission Date: 20080115
  Serious: No
  Sender: FDA-Public Use
  Company Number: US-ASTRAZENECA-2006UW16061

PATIENT
  Age: 54 Year
  Sex: Female
  Weight: 61.2 kg

DRUGS (6)
  1. SEROQUEL [Suspect]
     Indication: BIPOLAR DISORDER
     Route: 048
  2. SEROQUEL [Suspect]
     Route: 048
  3. LAMICTAL [Concomitant]
  4. ATENOLOL [Concomitant]
  5. MULTI-VITAMIN [Concomitant]
  6. CASCARA TAB [Concomitant]

REACTIONS (3)
  - FEELING DRUNK [None]
  - FEELING JITTERY [None]
  - PHARYNGOLARYNGEAL PAIN [None]
